FAERS Safety Report 8240605-3 (Version None)
Quarter: 2012Q1

REPORT INFORMATION
  Report Type: 
  Country: None (occurrence: None)
  Receive Date: 20120328
  Receipt Date: 20120321
  Transmission Date: 20120608
  Serious: Yes (Other)
  Sender: FDA-Public Use
  Company Number: US-AMGEN-USASP2010007113

PATIENT
  Age: 63 Year
  Sex: Female
  Weight: 63.039 kg

DRUGS (2)
  1. ENBREL [Suspect]
     Indication: PSORIATIC ARTHROPATHY
     Dosage: 50 MG, QWK
     Route: 058
     Dates: start: 20050801
  2. SULFASALAZINE [Concomitant]
     Dosage: 2 G, QD
     Route: 048

REACTIONS (2)
  - NEURILEMMOMA [None]
  - ALOPECIA [None]
